FAERS Safety Report 8496895-5 (Version None)
Quarter: 2012Q3

REPORT INFORMATION
  Report Type: 
  Country: None (occurrence: None)
  Receive Date: 20120709
  Receipt Date: 20120627
  Transmission Date: 20120928
  Serious: Yes (Hospitalization, Other)
  Sender: FDA-Public Use
  Company Number: US-ELI_LILLY_AND_COMPANY-US201108001695

PATIENT
  Sex: Female

DRUGS (13)
  1. ARIMIDEX [Concomitant]
  2. FORTEO [Suspect]
     Indication: OSTEOPOROSIS
     Dosage: 20 UG, QD
     Route: 065
     Dates: start: 20110729
  3. FORTEO [Suspect]
     Dosage: 20 UG, QD
     Route: 065
  4. OSCAL                              /00108001/ [Concomitant]
  5. TAMOXIFEN CITRATE [Concomitant]
  6. FORTEO [Suspect]
     Dosage: 20 UG, QD
  7. VITAMIN D [Concomitant]
  8. ZOLADEX [Concomitant]
  9. FEMARA [Concomitant]
  10. CALCIUM [Concomitant]
     Dosage: 500 MG, BID
  11. FORTEO [Suspect]
     Dosage: 20 UG, QD
  12. FORTEO [Suspect]
     Dosage: 20 UG, QD
  13. FOSAMAX [Concomitant]

REACTIONS (13)
  - PARAESTHESIA [None]
  - CONSTIPATION [None]
  - HYPOAESTHESIA [None]
  - EYELID PTOSIS [None]
  - FATIGUE [None]
  - BONE DENSITY DECREASED [None]
  - PUPILS UNEQUAL [None]
  - BACK DISORDER [None]
  - NAUSEA [None]
  - PAIN IN EXTREMITY [None]
  - CAROTID ARTERY ANEURYSM [None]
  - BONE DISORDER [None]
  - FLANK PAIN [None]
